FAERS Safety Report 19052987 (Version 1)
Quarter: 2021Q1

REPORT INFORMATION
  Report Type: Spontaneous
  Country: GB (occurrence: GB)
  Receive Date: 20210325
  Receipt Date: 20210325
  Transmission Date: 20210420
  Serious: Yes (Disabling, Other)
  Sender: FDA-Public Use
  Company Number: GB-AUROBINDO-AUR-APL-2021-011514

PATIENT
  Age: 2 Year
  Sex: Male

DRUGS (4)
  1. CETIRIZINE HYDROCHLORIDE. [Concomitant]
     Active Substance: CETIRIZINE HYDROCHLORIDE
     Indication: ILL-DEFINED DISORDER
     Dosage: UNK
     Route: 065
  2. SERETIDE [Concomitant]
     Active Substance: FLUTICASONE PROPIONATE\SALMETEROL XINAFOATE
     Indication: ILL-DEFINED DISORDER
     Dosage: UNK
     Route: 065
  3. SALBUTAMOL SULPHATE [Concomitant]
     Active Substance: ALBUTEROL SULFATE
     Indication: ILL-DEFINED DISORDER
     Dosage: UNK
     Route: 065
  4. MONTELUKAST [Suspect]
     Active Substance: MONTELUKAST SODIUM
     Indication: ILL-DEFINED DISORDER
     Dosage: 4 MILLIGRAM
     Route: 048
     Dates: start: 20131020, end: 20190902

REACTIONS (4)
  - Sleep disorder [Recovering/Resolving]
  - Adverse drug reaction [Not Recovered/Not Resolved]
  - Night sweats [Recovered/Resolved]
  - Sleep terror [Recovering/Resolving]

NARRATIVE: CASE EVENT DATE: 20131114
